FAERS Safety Report 6617718-2 (Version None)
Quarter: 2010Q1

REPORT INFORMATION
  Report Type: 
  Country: None (occurrence: None)
  Receive Date: 20100308
  Receipt Date: 20100225
  Transmission Date: 20100710
  Serious: Yes (Other)
  Sender: FDA-Public Use
  Company Number: CA-AMGEN-KDL394097

PATIENT
  Sex: Female

DRUGS (7)
  1. ENBREL [Suspect]
     Indication: RHEUMATOID ARTHRITIS
     Route: 058
     Dates: start: 20091101, end: 20100110
  2. METHOTREXATE [Concomitant]
  3. FENTANYL [Concomitant]
  4. HYDROXYCHLOROQUINE SULFATE [Concomitant]
  5. METOPROLOL TARTRATE [Concomitant]
  6. ASPIRIN [Concomitant]
  7. LOSEC [Concomitant]

REACTIONS (9)
  - FACE OEDEMA [None]
  - HEADACHE [None]
  - MUSCLE SPASMS [None]
  - NAUSEA [None]
  - OEDEMA PERIPHERAL [None]
  - PAIN [None]
  - THROAT TIGHTNESS [None]
  - VAGINAL DISCHARGE [None]
  - VOMITING [None]
